FAERS Safety Report 11763661 (Version 1)
Quarter: 2015Q4

REPORT INFORMATION
  Report Type: Spontaneous
  Country: US (occurrence: US)
  Receive Date: 20151120
  Receipt Date: 20151120
  Transmission Date: 20160304
  Serious: No
  Sender: FDA-Public Use
  Company Number: US-ELI_LILLY_AND_COMPANY-US201302008233

PATIENT
  Age: 61 Year
  Sex: Female

DRUGS (2)
  1. FORTEO [Suspect]
     Active Substance: TERIPARATIDE
     Dosage: UNK UNK, EACH MORNING
     Dates: start: 20130208
  2. FORTEO [Suspect]
     Active Substance: TERIPARATIDE
     Indication: OSTEOPOROSIS
     Dosage: UNK UNK, EACH MORNING
     Dates: start: 20130208

REACTIONS (5)
  - Incorrect product storage [Unknown]
  - Fracture [Unknown]
  - Injection site swelling [Unknown]
  - Cold sweat [Unknown]
  - Dizziness [Unknown]

NARRATIVE: CASE EVENT DATE: 20130409
